FAERS Safety Report 17094366 (Version 1)
Quarter: 2019Q4

REPORT INFORMATION
  Report Type: Spontaneous
  Country: US (occurrence: US)
  Receive Date: 20191129
  Receipt Date: 20191129
  Transmission Date: 20200122
  Serious: No
  Sender: FDA-Public Use
  Company Number: US-TEVA-2019-US-1144423

PATIENT
  Sex: Female

DRUGS (2)
  1. ATENOLOL TEVA [Suspect]
     Active Substance: ATENOLOL
     Route: 065
     Dates: start: 2019
  2. ATENOLOL TEVA [Suspect]
     Active Substance: ATENOLOL
     Route: 065
     Dates: start: 2019

REACTIONS (2)
  - Delusion [Unknown]
  - Feeling abnormal [Unknown]
